FAERS Safety Report 24422535 (Version 1)
Quarter: 2024Q4

REPORT INFORMATION
  Report Type: Report from Study
  Country: US (occurrence: US)
  Receive Date: 20241010
  Receipt Date: 20241010
  Transmission Date: 20250115
  Serious: Yes (Other)
  Sender: TEVA
  Company Number: US-TEVA-VS-3251480

PATIENT
  Age: 18 Year
  Sex: Male

DRUGS (2)
  1. CLONAZEPAM [Suspect]
     Active Substance: CLONAZEPAM
     Indication: Product used for unknown indication
     Route: 065
  2. VALIUM [Suspect]
     Active Substance: DIAZEPAM
     Indication: Product used for unknown indication
     Dosage: IN MORNING
     Route: 065

REACTIONS (6)
  - Toxicity to various agents [Unknown]
  - Road traffic accident [Unknown]
  - Dysarthria [Unknown]
  - Ocular hyperaemia [Unknown]
  - Dizziness [Unknown]
  - Gait disturbance [Unknown]
